FAERS Safety Report 8092716-3 (Version None)
Quarter: 2012Q1

REPORT INFORMATION
  Report Type: 
  Country: None (occurrence: None)
  Receive Date: 20120128
  Receipt Date: 20110803
  Transmission Date: 20120608
  Serious: No
  Sender: FDA-Public Use
  Company Number: US-ABBOTT-11P-163-0843939-00

PATIENT
  Age: 52 Year
  Sex: Female

DRUGS (13)
  1. CALCIUM [Concomitant]
     Indication: PRODUCT USED FOR UNKNOWN INDICATION
     Dosage: DAILY
  2. VITAMIN D [Concomitant]
     Indication: SUPPLEMENTATION THERAPY
     Dosage: DAILY
  3. VICTOZA [Concomitant]
     Indication: TYPE 2 DIABETES MELLITUS
     Dosage: PEN DAILY
  4. LISINOPRIL [Concomitant]
     Indication: HYPERTENSION
     Dosage: DAILY
  5. HUMIRA [Suspect]
     Indication: RHEUMATOID ARTHRITIS
     Dates: start: 20090801
  6. CARVEDILOL [Concomitant]
     Indication: HYPERTENSION
     Dosage: DAILY
  7. ALPRAZOLAM [Concomitant]
     Indication: ANXIETY
     Dosage: DAILY
  8. TRIAMTERENE [Concomitant]
     Indication: HYPERTENSION
     Dosage: DAILY
  9. LEVOTHYROXINE SODIUM [Concomitant]
     Indication: HYPERTHYROIDISM
  10. PROAIR HFA [Concomitant]
     Indication: DYSPNOEA
  11. METFORMIN HCL [Concomitant]
     Indication: TYPE 2 DIABETES MELLITUS
     Dosage: DAILY
  12. CYMBALTA [Concomitant]
     Indication: DEPRESSION
     Dosage: DAILY
  13. VALACYCLOVIR [Concomitant]
     Indication: HERPES SIMPLEX
     Dosage: DAILY

REACTIONS (3)
  - INFLUENZA LIKE ILLNESS [None]
  - OROPHARYNGEAL PAIN [None]
  - COUGH [None]
